FAERS Safety Report 9664272 (Version 3)
Quarter: 2013Q4

REPORT INFORMATION
  Report Type: Spontaneous
  Country: NL (occurrence: NL)
  Receive Date: 20131101
  Receipt Date: 20131120
  Transmission Date: 20140711
  Serious: Yes (Hospitalization)
  Sender: FDA-Public Use
  Company Number: NL-009507513-1309NLD003882

PATIENT
  Age: 26 Year
  Sex: Female

DRUGS (3)
  1. IMPLANON NXT [Suspect]
     Indication: VAGINAL HAEMORRHAGE
     Dosage: UNK
     Route: 058
  2. IMPLANON NXT [Suspect]
     Indication: CONTRACEPTION
     Dosage: UNK
     Route: 058
     Dates: start: 2010
  3. PHENPROCOUMON [Suspect]
     Indication: CARDIAC VALVE DISEASE

REACTIONS (5)
  - Haemoglobin decreased [Unknown]
  - Transfusion [Recovered/Resolved]
  - Implant site haemorrhage [Recovered/Resolved]
  - Implant site haematoma [Recovered/Resolved]
  - Device difficult to use [Unknown]
